FAERS Safety Report 22585272 (Version 1)
Quarter: 2023Q2

REPORT INFORMATION
  Report Type: Report from Study
  Country: US (occurrence: None)
  Receive Date: 20230610
  Receipt Date: 20230610
  Transmission Date: 20230721
  Serious: Yes (Hospitalization)
  Sender: FDA-Public Use
  Company Number: 2023A115841

PATIENT
  Age: 64 Year
  Sex: Male

DRUGS (31)
  1. OLAPARIB [Suspect]
     Active Substance: OLAPARIB
     Indication: Squamous cell carcinoma of head and neck
     Dosage: 200 MILLIGRAM, BID
     Route: 048
     Dates: start: 20230503, end: 20230506
  2. PEMBROLIZUMAB [Suspect]
     Active Substance: PEMBROLIZUMAB
     Indication: Squamous cell carcinoma of head and neck
     Dosage: 200 MILLIGRAM, Q3W
     Dates: start: 20230503
  3. CARBOPLATIN [Suspect]
     Active Substance: CARBOPLATIN
     Indication: Squamous cell carcinoma of head and neck
     Dosage: AREA UNDER THE CURVE (AUC) 5, Q3W
     Dates: start: 20230503
  4. TYLENOL [Concomitant]
     Active Substance: ACETAMINOPHEN
     Dosage: 31.2 MILLILITER (1000 MG TOTAL), Q6H
     Dates: start: 20221017
  5. ARGININE [Concomitant]
     Active Substance: ARGININE
     Dosage: 500 MILLIGRAM
     Dates: start: 20221017
  6. TESSALON [Concomitant]
     Active Substance: BENZONATATE
     Dosage: 200 MILLIGRAM
     Dates: start: 20230406
  7. WELLBUTRIN XL [Concomitant]
     Active Substance: BUPROPION HYDROCHLORIDE
     Dosage: 1 TABLET (150 MG TOTAL), DAILY
     Route: 048
  8. BUSPAR [Concomitant]
     Active Substance: BUSPIRONE HYDROCHLORIDE
     Dosage: 1 TABLET (15 MG TOTAL) 3 TIMES A DAY
     Dates: start: 20221017
  9. ROCALTROL [Concomitant]
     Active Substance: CALCITRIOL
     Dosage: 0.25 ML (0.25 MCG TOTAL), DAILY
     Dates: start: 20221025
  10. PERIDEX [CHLORHEXIDINE GLUCONATE] [Concomitant]
     Dosage: 15 MILLILITER TO THE MOUTH OR THROAT, 3 TIMES A DAY
     Route: 048
     Dates: start: 20221102
  11. VITAMIN B12 [Concomitant]
     Active Substance: CYANOCOBALAMIN
     Dosage: 1 ML (1000 MCG TOTAL) EVERY 14 DAYS
     Route: 030
  12. VALIUM [Concomitant]
     Active Substance: DIAZEPAM
     Indication: Anxiety
     Dosage: 1 TABLET (10 MILLIGRAM TOTAL), EVERY 6 HOURS AS NEEDED
     Dates: start: 20221017
  13. PEPCID [Concomitant]
     Active Substance: FAMOTIDINE
     Dosage: 1 TABLET (20 MILLIGRAM TOTAL), BID
     Route: 048
  14. FLONASE [Concomitant]
     Active Substance: FLUTICASONE PROPIONATE
     Dosage: 2 SPRAYS INTO EACH NOSTRIL, DAILY
     Route: 045
     Dates: start: 20221017
  15. ADVIL [Concomitant]
     Active Substance: IBUPROFEN
     Indication: Pain
     Dosage: 1 TABLET (600 MG TOTAL) EVERY 6 HOURS AS NEEDED
     Dates: start: 20221017
  16. XYZAL [Concomitant]
     Active Substance: LEVOCETIRIZINE DIHYDROCHLORIDE
     Dosage: 2 TABLETS (10 MILLIGRAM TOTAL)
     Dates: start: 20221017
  17. XIIDRA [Concomitant]
     Active Substance: LIFITEGRAST
     Dosage: 1 DROP INTO AFFECTED EYES, 2 TIMES A DAY
     Route: 047
  18. LUTEIN PLUS [Concomitant]
     Dosage: 20 MILLIGRAM
     Dates: start: 20221017
  19. ALEVE [Concomitant]
     Active Substance: NAPROXEN SODIUM
     Dosage: 1-2 TABLETS, Q12H
     Route: 048
     Dates: start: 20221017
  20. BYSTOLIC [Concomitant]
     Active Substance: NEBIVOLOL HYDROCHLORIDE
     Dosage: 1 TABLET (10 MILLIGRAM TOTAL), QD
     Route: 048
     Dates: start: 20230410
  21. VITAMIN D3 [Concomitant]
     Active Substance: CHOLECALCIFEROL
     Dosage: 500 MG-5 MCG (200 UNIT) PER TABLET / 1 TABLET 3 TIMES A DAY WITH MEALS
     Route: 048
     Dates: start: 20230306
  22. POTASSIUM GLUCONATE [Concomitant]
     Active Substance: POTASSIUM GLUCONATE
     Dosage: 1 TABLET (550 MILLIGRAM TOTAL)
     Dates: start: 20221017
  23. PROCHLORPERAZINE [Concomitant]
     Active Substance: PROCHLORPERAZINE
     Indication: Nausea
     Dosage: 1 TABLET (10 MILLIGRAM TOTAL), EVERY 8 HOURS AS NEEDED
     Route: 048
     Dates: start: 20230426
  24. RESTASIS [Concomitant]
     Active Substance: CYCLOSPORINE
     Dosage: 1 GTT DROPS, BID
     Route: 047
     Dates: start: 20230208
  25. ZOCOR [Concomitant]
     Active Substance: SIMVASTATIN
     Dosage: 1 TABLET (10 MILLIGRAM TOTAL), NIGTHLY
     Dates: start: 20221017
  26. CIALIS [Concomitant]
     Active Substance: TADALAFIL
     Indication: Erectile dysfunction
     Dosage: 1 TABLET (20 MILLIGRAM TOTAL), DAILY AS NEEDED
     Dates: start: 20221017
  27. TESTOSTERONE [Concomitant]
     Active Substance: TESTOSTERONE
     Dosage: INJECT INTO THE MUSCLE AS INSTRUCTED EVERY 14 DAYS, PT TAKES EVERY 10 DAYS, 0.8 ML
     Route: 030
  28. ZINC [Concomitant]
     Active Substance: ZINC
     Dosage: UNK
     Dates: start: 20221017
  29. ALBUTEROL\IPRATROPIUM [Concomitant]
     Active Substance: ALBUTEROL\IPRATROPIUM
     Dosage: 3 MILLILITER, Q6H PRN
  30. LABETALOL [Concomitant]
     Active Substance: LABETALOL\LABETALOL HYDROCHLORIDE
     Dosage: 10 MG, EVERY 4 HOURS PRN
  31. ZOFRAN [Concomitant]
     Active Substance: ONDANSETRON HYDROCHLORIDE
     Dosage: 4 MG, EVERY 6 HOURS PRN
     Route: 042

REACTIONS (2)
  - Pyrexia [Recovered/Resolved]
  - Oesophageal fistula [Recovering/Resolving]

NARRATIVE: CASE EVENT DATE: 20230506
